FAERS Safety Report 5834466-7 (Version None)
Quarter: 2008Q3

REPORT INFORMATION
  Report Type: 
  Country: None (occurrence: None)
  Receive Date: 20080805
  Receipt Date: 20080715
  Transmission Date: 20090109
  Serious: No
  Sender: FDA-Public Use
  Company Number: US-BOEHRINGER INGELHEIM GMBH, GERMANY-2008-BP-11162BP

PATIENT
  Sex: Female

DRUGS (7)
  1. ZANTAC 150 [Suspect]
     Indication: DYSPEPSIA
     Route: 048
     Dates: start: 20080711, end: 20080711
  2. ATENOLOL [Suspect]
     Indication: HYPERTENSION
     Route: 048
  3. COZAAR [Suspect]
     Indication: HYPERTENSION
     Route: 048
  4. ASPIRIN [Suspect]
  5. SYNTHROID [Concomitant]
     Indication: HYPOTHYROIDISM
     Route: 048
  6. PREMPRO [Concomitant]
     Indication: MENOPAUSE
     Route: 048
  7. MYLANTA [Concomitant]
     Indication: DYSPEPSIA
     Route: 048

REACTIONS (3)
  - DIZZINESS [None]
  - DYSPEPSIA [None]
  - HYPERHIDROSIS [None]
